FAERS Safety Report 6394618-7 (Version None)
Quarter: 2009Q4

REPORT INFORMATION
  Report Type: 
  Country: None (occurrence: None)
  Receive Date: 20091009
  Receipt Date: 20091005
  Transmission Date: 20100525
  Serious: Yes (Hospitalization)
  Sender: FDA-Public Use
  Company Number: DE-ROCHE-656057

PATIENT
  Sex: Female

DRUGS (5)
  1. PEG-INTERFERON ALFA 2A (RO 25-8310) [Suspect]
     Route: 058
     Dates: start: 20090406, end: 20090902
  2. RIBAVIRIN [Suspect]
     Route: 048
     Dates: start: 20090406, end: 20090902
  3. BLINDED DEBIO-025 (UNIL-025) [Suspect]
     Dosage: DOSE BLINDED.
     Route: 048
     Dates: start: 20090406, end: 20090412
  4. BLINDED DEBIO-025 (UNIL-025) [Suspect]
     Dosage: DOSE BLINDED.
     Route: 048
     Dates: start: 20090413, end: 20090902
  5. IBUPROFEN [Suspect]
     Route: 048
     Dates: start: 20090406

REACTIONS (1)
  - EMBOLISM [None]
